FAERS Safety Report 7547040-1 (Version None)
Quarter: 2011Q2

REPORT INFORMATION
  Report Type: 
  Country: None (occurrence: None)
  Receive Date: 20110607
  Receipt Date: 20110531
  Transmission Date: 20111010
  Serious: Yes (Other)
  Sender: FDA-Public Use
  Company Number: 2009SP023524

PATIENT
  Age: 22 Year
  Sex: Female
  Weight: 85.7298 kg

DRUGS (3)
  1. ORAL CONTRACEPTIVES [Suspect]
     Indication: ORAL CONTRACEPTION
     Dates: end: 20080801
  2. NUVARING [Suspect]
     Indication: CONTRACEPTION
     Dosage: VAG
     Route: 067
     Dates: start: 20070801
  3. NUVARING [Suspect]
     Indication: CONTRACEPTION
     Dosage: VAG
     Route: 067
     Dates: start: 20080301, end: 20080801

REACTIONS (7)
  - INFLUENZA LIKE ILLNESS [None]
  - IRON DEFICIENCY ANAEMIA [None]
  - ABORTION INCOMPLETE [None]
  - THROMBOSIS [None]
  - ABORTION SPONTANEOUS [None]
  - PULMONARY EMBOLISM [None]
  - OVARIAN CYST [None]
